FAERS Safety Report 10046020 (Version 3)
Quarter: 2014Q2

REPORT INFORMATION
  Report Type: Spontaneous
  Country: US (occurrence: US)
  Receive Date: 20140330
  Receipt Date: 20140519
  Transmission Date: 20141212
  Serious: Yes (Other)
  Sender: FDA-Public Use
  Company Number: US-009507513-1403USA012469

PATIENT
  Age: 91 Year
  Sex: Female

DRUGS (3)
  1. JANUMET [Suspect]
     Indication: DIABETES MELLITUS
     Dosage: ^50/1^ 2 TABLETS PER DAY
     Route: 048
  2. COREG [Concomitant]
     Indication: CARDIAC DISORDER
  3. VITAMINS (UNSPECIFIED) [Concomitant]

REACTIONS (4)
  - Toe operation [Unknown]
  - Pain in extremity [Not Recovered/Not Resolved]
  - Muscle spasms [Not Recovered/Not Resolved]
  - Burning sensation [Not Recovered/Not Resolved]
